FAERS Safety Report 7755252-7 (Version None)
Quarter: 2011Q3

REPORT INFORMATION
  Report Type: 
  Country: None (occurrence: None)
  Receive Date: 20110914
  Receipt Date: 20110902
  Transmission Date: 20111222
  Serious: Yes (Hospitalization, Other)
  Sender: FDA-Public Use
  Company Number: UKP11000068

PATIENT
  Age: 54 Year
  Sex: Male
  Weight: 89.9 kg

DRUGS (12)
  1. ACETAMINOPHEN AND CODEINE PHOSPHATE [Concomitant]
  2. MESALAMINE [Suspect]
     Indication: COLITIS ULCERATIVE
     Dosage: 800 MG, 3/DAY, ORAL; 400 MG, 3/DAY, ORAL;
     Route: 048
     Dates: end: 20110527
  3. MESALAMINE [Suspect]
     Indication: COLITIS ULCERATIVE
     Dosage: 800 MG, 3/DAY, ORAL; 400 MG, 3/DAY, ORAL;
     Route: 048
     Dates: start: 20070101
  4. DESLORATADINE [Concomitant]
  5. SIMVASTATIN [Concomitant]
  6. ASACOL [Suspect]
     Indication: COLITIS ULCERATIVE
     Dosage: 2G, RECTAL
     Route: 054
     Dates: start: 20070101
  7. FERROUS FUMARATE [Concomitant]
  8. ATENOLOL [Concomitant]
  9. WARFARIN SODIUM [Concomitant]
  10. CITALOPRAM [Concomitant]
  11. ISOSORBIDE MONONITRATE [Concomitant]
  12. FEXOFENADINE [Concomitant]

REACTIONS (8)
  - RASH [None]
  - LEUKOPENIA [None]
  - THROMBOCYTOPENIA [None]
  - NEUTROPENIC SEPSIS [None]
  - ANAEMIA [None]
  - CONTUSION [None]
  - EOSINOPHILIA [None]
  - NEUTROPENIA [None]
